FAERS Safety Report 19283372 (Version 2)
Quarter: 2021Q2

REPORT INFORMATION
  Report Type: Report from Study
  Country: GR (occurrence: GR)
  Receive Date: 20210521
  Receipt Date: 20210601
  Transmission Date: 20210717
  Serious: Yes (Other)
  Sender: FDA-Public Use
  Company Number: NVSC2021GR106572

PATIENT
  Age: 5 Month
  Sex: Female
  Weight: 6.6 kg

DRUGS (1)
  1. ZOLGENSMA [Suspect]
     Active Substance: ONASEMNOGENE ABEPARVOVEC-XIOI
     Indication: SPINAL MUSCULAR ATROPHY
     Dosage: 38.5 ML, ONCE/SINGLE (1.7X10E14 VG)
     Route: 042
     Dates: start: 20210128

REACTIONS (6)
  - Blood lactate dehydrogenase increased [Unknown]
  - Blood creatine phosphokinase increased [Recovering/Resolving]
  - Thrombocytopenia [Unknown]
  - Hypertransaminasaemia [Unknown]
  - Proteinuria [Unknown]
  - Neutropenia [Unknown]

NARRATIVE: CASE EVENT DATE: 20210204
